FAERS Safety Report 8663598 (Version 3)
Quarter: 2013Q4

REPORT INFORMATION
  Report Type: Spontaneous
  Country: US (occurrence: US)
  Receive Date: 20120713
  Receipt Date: 20131101
  Transmission Date: 20140711
  Serious: No
  Sender: FDA-Public Use
  Company Number: US-009507513-2012SP035889

PATIENT
  Age: 91 Year
  Sex: Male

DRUGS (2)
  1. NASONEX [Suspect]
     Indication: PRODUCT USED FOR UNKNOWN INDICATION
  2. ORGASULINE RAPIDE [Concomitant]
     Indication: PRODUCT USED FOR UNKNOWN INDICATION

REACTIONS (1)
  - Chest pain [Not Recovered/Not Resolved]
